FAERS Safety Report 5524816-3 (Version None)
Quarter: 2007Q4

REPORT INFORMATION
  Report Type: 
  Country: None (occurrence: None)
  Receive Date: 20071116
  Receipt Date: 20071105
  Transmission Date: 20080405
  Serious: Yes (Other)
  Sender: FDA-Public Use
  Company Number: 2007331028

PATIENT
  Age: 67 Year
  Sex: Female

DRUGS (3)
  1. MYLANTA PLUS (MAGNESIUM HYDROXIDE, ALUMINIUM HYDROXIDE, SIMETHICONE) [Suspect]
     Indication: DYSPEPSIA
     Dosage: ONE SMALL SPOON SPORADICALLY, ORAL
     Route: 048
     Dates: start: 20070901, end: 20070901
  2. VOLTAREN [Concomitant]
  3. DRUG, UNSPECIFIED (DRUG, UNSPECIFIED) [Concomitant]

REACTIONS (7)
  - ABDOMINAL PAIN [None]
  - ABDOMINAL PAIN UPPER [None]
  - HEPATIC PAIN [None]
  - HEPATIC STEATOSIS [None]
  - THROAT IRRITATION [None]
  - URINARY TRACT INFECTION [None]
  - VOMITING [None]
